FAERS Safety Report 5753711-X (Version None)
Quarter: 2008Q2

REPORT INFORMATION
  Report Type: 
  Country: None (occurrence: None)
  Receive Date: 20080530
  Receipt Date: 20080521
  Transmission Date: 20081010
  Serious: Yes (Other)
  Sender: FDA-Public Use
  Company Number: BR-SANOFI-SYNTHELABO-A01200805710

PATIENT
  Sex: Male
  Weight: 65 kg

DRUGS (2)
  1. INTERFERON (NOS) [Suspect]
     Indication: DRUG USE FOR UNKNOWN INDICATION
     Dosage: UNK
     Route: 065
     Dates: end: 20080515
  2. STILNOX [Suspect]
     Indication: INSOMNIA
     Route: 048
     Dates: start: 20080410, end: 20080515

REACTIONS (5)
  - DRUG WITHDRAWAL SYNDROME [None]
  - HYPOAESTHESIA ORAL [None]
  - INSOMNIA [None]
  - PARAESTHESIA [None]
  - WEIGHT DECREASED [None]
